FAERS Safety Report 4677357-X (Version None)
Quarter: 2005Q2

REPORT INFORMATION
  Report Type: 
  Country: None (occurrence: None)
  Receive Date: 20050526
  Receipt Date: 20050513
  Transmission Date: 20051028
  Serious: Yes (Life-Threatening, Other)
  Sender: FDA-Public Use
  Company Number: HQWYE734313MAY05

PATIENT
  Age: 39 Year
  Sex: Female

DRUGS (3)
  1. CORDAREX (AMIODARONE, INJECTION) [Suspect]
     Indication: VENTRICULAR FIBRILLATION
     Dosage: 600 MG 1X PER 1 DAY INTRAVENOUS
     Route: 042
     Dates: start: 20050325, end: 20050325
  2. DOBUTREX [Concomitant]
  3. RAMIPRIL [Suspect]

REACTIONS (5)
  - ALANINE AMINOTRANSFERASE INCREASED [None]
  - ASPARTATE AMINOTRANSFERASE INCREASED [None]
  - BLOOD LACTATE DEHYDROGENASE INCREASED [None]
  - LIVER DISORDER [None]
  - LIVER FUNCTION TEST ABNORMAL [None]
